FAERS Safety Report 24156686 (Version 1)
Quarter: 2024Q3

REPORT INFORMATION
  Report Type: Spontaneous
  Country: US (occurrence: US)
  Receive Date: 20240731
  Receipt Date: 20240731
  Transmission Date: 20241017
  Serious: No
  Sender: MYLAN
  Company Number: US-MYLANLABS-2024M1069539

PATIENT
  Age: 81 Year
  Sex: Male

DRUGS (2)
  1. LYRICA [Suspect]
     Active Substance: PREGABALIN
     Indication: Seizure
     Dosage: 50 MILLIGRAM, BID (TWICE DAILY)
     Route: 048
     Dates: start: 20141028
  2. LYRICA [Suspect]
     Active Substance: PREGABALIN
     Indication: Lumbosacral radiculopathy
     Dosage: 50 MILLIGRAM, BID (TWICE DAILY)
     Route: 048
     Dates: start: 20160524

REACTIONS (2)
  - Underdose [Unknown]
  - Product use in unapproved indication [Unknown]

NARRATIVE: CASE EVENT DATE: 20141028
